FAERS Safety Report 17442165 (Version 1)
Quarter: 2020Q1

REPORT INFORMATION
  Report Type: Spontaneous
  Country: FR (occurrence: FR)
  Receive Date: 20200220
  Receipt Date: 20200220
  Transmission Date: 20200409
  Serious: Yes (Hospitalization)
  Sender: FDA-Public Use
  Company Number: FR-JNJFOC-20200224843

PATIENT
  Age: 77 Year
  Sex: Male
  Weight: 80 kg

DRUGS (1)
  1. XARELTO [Suspect]
     Active Substance: RIVAROXABAN
     Indication: ISCHAEMIC STROKE
     Dosage: UNK
     Route: 048
     Dates: start: 2019, end: 20191218

REACTIONS (2)
  - Drug ineffective [Recovered/Resolved]
  - Ischaemic stroke [Not Recovered/Not Resolved]

NARRATIVE: CASE EVENT DATE: 20191205
